FAERS Safety Report 5320651-X (Version None)
Quarter: 2007Q2

REPORT INFORMATION
  Report Type: 
  Country: None (occurrence: None)
  Receive Date: 20070509
  Receipt Date: 20070427
  Transmission Date: 20071010
  Serious: Yes (Other)
  Sender: FDA-Public Use
  Company Number: US-PFIZER INC-2007026530

PATIENT
  Sex: Male

DRUGS (2)
  1. CHANTIX [Suspect]
     Indication: EX-SMOKER
  2. DIURETICS [Concomitant]
     Indication: HYPERTENSION

REACTIONS (7)
  - ABNORMAL DREAMS [None]
  - ABNORMAL SENSATION IN EYE [None]
  - DECREASED APPETITE [None]
  - DYSKINESIA [None]
  - NAUSEA [None]
  - SOMNOLENCE [None]
  - STOMACH DISCOMFORT [None]
